FAERS Safety Report 11238663 (Version 3)
Quarter: 2019Q1

REPORT INFORMATION
  Report Type: Spontaneous
  Country: JP (occurrence: JP)
  Receive Date: 20150706
  Receipt Date: 20190304
  Transmission Date: 20190417
  Serious: Yes (Hospitalization, Other)
  Sender: FDA-Public Use
  Company Number: PHJP2015JP010924

PATIENT
  Age: 38 Year
  Sex: Male

DRUGS (8)
  1. MINOMYCIN [Concomitant]
     Active Substance: MINOCYCLINE HYDROCHLORIDE
     Indication: PYREXIA
     Dosage: UNK
     Route: 065
  2. LASIX [Concomitant]
     Active Substance: FUROSEMIDE
     Indication: POLYURIA
     Dosage: UNK
     Route: 065
  3. ALDACTONE A [Concomitant]
     Active Substance: SPIRONOLACTONE
     Indication: POLYURIA
     Dosage: UNK
     Route: 065
  4. WARFARIN [Concomitant]
     Active Substance: WARFARIN
     Indication: PRODUCT USED FOR UNKNOWN INDICATION
     Dosage: UNK
     Route: 065
  5. CLARITH [Concomitant]
     Active Substance: CLARITHROMYCIN
     Indication: PYREXIA
     Dosage: UNK
     Route: 065
  6. VOLTAREN [Suspect]
     Active Substance: DICLOFENAC SODIUM
     Indication: PYREXIA
     Dosage: UNK
     Route: 065
     Dates: start: 200804
  7. FASTIC [Concomitant]
     Active Substance: NATEGLINIDE
     Indication: HYPERGLYCAEMIA
     Dosage: 90 MG, UNK
     Route: 065
  8. HEPARIN [Concomitant]
     Active Substance: HEPARIN SODIUM
     Indication: PRODUCT USED FOR UNKNOWN INDICATION
     Dosage: UNK, ADMINISTERED FOR A WEEK
     Route: 065

REACTIONS (7)
  - Generalised oedema [Unknown]
  - Scrotal oedema [Unknown]
  - Oedema peripheral [Unknown]
  - Pain [Unknown]
  - Malaise [Unknown]
  - Diabetic nephropathy [Unknown]
  - Movement disorder [Unknown]

NARRATIVE: CASE EVENT DATE: 200804
